FAERS Safety Report 19691096 (Version 1)
Quarter: 2021Q3

REPORT INFORMATION
  Report Type: Spontaneous
  Country: US (occurrence: US)
  Receive Date: 20210812
  Receipt Date: 20210812
  Transmission Date: 20211014
  Serious: No
  Sender: FDA-Public Use
  Company Number: None

PATIENT
  Age: 36 Year
  Sex: Female
  Weight: 67.5 kg

DRUGS (10)
  1. PEPCID AC [Concomitant]
     Active Substance: FAMOTIDINE
  2. CHELATED MAGNESIUM [Concomitant]
  3. COLLAGEN [Concomitant]
     Active Substance: COLLAGEN
  4. BUPRENORPHINE. [Concomitant]
     Active Substance: BUPRENORPHINE
  5. BUPROPRION XL [Concomitant]
     Active Substance: BUPROPION
  6. BUPRENORPHINE AND NALOXONE SUBLINGUAL STRIP [Suspect]
     Active Substance: BUPRENORPHINE\NALOXONE
     Indication: DRUG DEPENDENCE
     Dosage: ?          QUANTITY:1 STRIP;?
     Route: 060
     Dates: start: 20210812, end: 20210812
  7. BENADRYL [Concomitant]
     Active Substance: DIPHENHYDRAMINE HYDROCHLORIDE
  8. GABAPENTIN. [Concomitant]
     Active Substance: GABAPENTIN
  9. ENTERIC PEPPERMINT PILLS [Concomitant]
  10. ALBUTEROL. [Concomitant]
     Active Substance: ALBUTEROL

REACTIONS (2)
  - Migraine [None]
  - Gastrooesophageal reflux disease [None]

NARRATIVE: CASE EVENT DATE: 20210812
